FAERS Safety Report 4449400-4 (Version None)
Quarter: 2004Q3

REPORT INFORMATION
  Report Type: 
  Country: None (occurrence: None)
  Receive Date: 20040914
  Receipt Date: 20040830
  Transmission Date: 20050211
  Serious: Yes (Other)
  Sender: FDA-Public Use
  Company Number: 208768

PATIENT
  Sex: Female

DRUGS (1)
  1. AVASTIN [Suspect]
     Dosage: Q2W, INTRAVENOUS
     Route: 042

REACTIONS (4)
  - ANGIONEUROTIC OEDEMA [None]
  - CAPILLARY LEAK SYNDROME [None]
  - OEDEMA [None]
  - TELANGIECTASIA [None]
